FAERS Safety Report 15867469 (Version 1)
Quarter: 2019Q1

REPORT INFORMATION
  Report Type: Spontaneous
  Country: US (occurrence: US)
  Receive Date: 20190102
  Receipt Date: 20190102
  Transmission Date: 20190417
  Serious: No
  Sender: FDA-Public Use
  Company Number: None

PATIENT
  Age: 65 Year
  Sex: Female
  Weight: 64.41 kg

DRUGS (1)
  1. ENBREL [Suspect]
     Active Substance: ETANERCEPT
     Indication: RHEUMATOID ARTHRITIS
     Dosage: INJECT 25MG SUBCUTANEOUSLY  TWO TIMES A  WEEK 72-96 HOURS APART  AS DIRECTED??-INTERRUPTED
     Route: 058
     Dates: start: 201808

REACTIONS (1)
  - Malaise [None]
